FAERS Safety Report 6630886-1 (Version None)
Quarter: 2010Q1

REPORT INFORMATION
  Report Type: 
  Country: None (occurrence: None)
  Receive Date: 20100311
  Receipt Date: 20100201
  Transmission Date: 20100710
  Serious: Yes (Hospitalization)
  Sender: FDA-Public Use
  Company Number: US-ROCHE-689248

PATIENT
  Sex: Male

DRUGS (2)
  1. PEG-INTERFERON A-2A (RO 25-8310) [Suspect]
     Indication: HEPATITIS C
     Dosage: PATIENT WAS IN WEEK 10 OF THERAPY; PRE-FILLED SYRINGE
     Route: 065
     Dates: start: 20091130
  2. RIBAVIRIN [Suspect]
     Indication: HEPATITIS C
     Dosage: PATIENT WAS IN WEEK 10 OF THERAPY; DIVIDED DOSES
     Route: 065
     Dates: start: 20091130

REACTIONS (5)
  - ANAEMIA [None]
  - CHEST PAIN [None]
  - DIZZINESS [None]
  - FALL [None]
  - INSOMNIA [None]
